FAERS Safety Report 5905173-7 (Version None)
Quarter: 2008Q3

REPORT INFORMATION
  Report Type: 
  Country: None (occurrence: None)
  Receive Date: 20080909
  Receipt Date: 20071218
  Transmission Date: 20090109
  Serious: Yes (Disabling)
  Sender: FDA-Public Use
  Company Number: 163-20785-07101575

PATIENT
  Age: 14 Year
  Sex: Female

DRUGS (4)
  1. THALOMID [Suspect]
     Indication: BRAIN NEOPLASM MALIGNANT
     Dosage: 350 MG DAILY ORAL
     Route: 048
     Dates: start: 20070917
  2. CYTOXAN [Suspect]
     Indication: BRAIN NEOPLASM MALIGNANT
     Dosage: 100 MG, X 21 DAYS, UNKNOWN
     Dates: start: 20070802
  3. ETOPOSIDE [Suspect]
     Indication: BRAIN NEOPLASM MALIGNANT
     Dosage: 50MG QOD, 100 MG QOD X 21 DAYS. ALTERNATE Q 21 DAYS, UNKNOWN
     Dates: start: 20070713
  4. CELEBREX [Concomitant]

REACTIONS (1)
  - FATIGUE [None]
